FAERS Safety Report 10214361 (Version 1)
Quarter: 2014Q2

REPORT INFORMATION
  Report Type: Spontaneous
  Country: US (occurrence: None)
  Receive Date: 20140602
  Receipt Date: 20140602
  Transmission Date: 20141212
  Serious: No
  Sender: FDA-Public Use
  Company Number: None

PATIENT
  Age: 50 Year
  Sex: Female

DRUGS (1)
  1. VIVITROL [Suspect]
     Indication: ALCOHOLISM
     Route: 030
     Dates: start: 20140311

REACTIONS (2)
  - Sluggishness [None]
  - Pain [None]
